FAERS Safety Report 11680605 (Version 2)
Quarter: 2015Q4

REPORT INFORMATION
  Report Type: Spontaneous
  Country: US (occurrence: US)
  Receive Date: 20151027
  Receipt Date: 20151104
  Transmission Date: 20160304
  Serious: No
  Sender: FDA-Public Use
  Company Number: US-ELI_LILLY_AND_COMPANY-US201005005724

PATIENT
  Sex: Female

DRUGS (3)
  1. FORTEO [Suspect]
     Active Substance: TERIPARATIDE
     Dosage: 20 UG, DAILY (1/D)
  2. FORTEO [Suspect]
     Active Substance: TERIPARATIDE
     Dosage: 20 UG, DAILY (1/D)
  3. FORTEO [Suspect]
     Active Substance: TERIPARATIDE
     Indication: OSTEOPOROSIS
     Dosage: 20 UG, DAILY (1/D)
     Dates: start: 200909

REACTIONS (12)
  - Haemorrhage [Unknown]
  - Fatigue [Unknown]
  - Abdominal discomfort [Unknown]
  - Middle insomnia [Unknown]
  - Varicose vein [Not Recovered/Not Resolved]
  - Asthenia [Unknown]
  - Crepitations [Unknown]
  - Pain in extremity [Unknown]
  - Psychomotor hyperactivity [Unknown]
  - Energy increased [Unknown]
  - Gait disturbance [Unknown]
  - Nausea [Unknown]

NARRATIVE: CASE EVENT DATE: 2010
